FAERS Safety Report 7978666-9 (Version None)
Quarter: 2011Q4

REPORT INFORMATION
  Report Type: 
  Country: None (occurrence: None)
  Receive Date: 20111214
  Receipt Date: 20111206
  Transmission Date: 20120403
  Serious: Yes (Hospitalization)
  Sender: FDA-Public Use
  Company Number: BR-US-EMD SERONO, INC.-7100237

PATIENT
  Sex: Male

DRUGS (1)
  1. REBIF [Suspect]
     Indication: RELAPSING-REMITTING MULTIPLE SCLEROSIS

REACTIONS (6)
  - URINARY INCONTINENCE [None]
  - CENTRAL NERVOUS SYSTEM LESION [None]
  - MICTURITION URGENCY [None]
  - PARAESTHESIA [None]
  - FAECAL INCONTINENCE [None]
  - DEFAECATION URGENCY [None]
